FAERS Safety Report 16039047 (Version 1)
Quarter: 2019Q1

REPORT INFORMATION
  Report Type: Spontaneous
  Country: US (occurrence: US)
  Receive Date: 20190306
  Receipt Date: 20190306
  Transmission Date: 20190418
  Serious: No
  Sender: FDA-Public Use
  Company Number: US-VERTEX PHARMACEUTICALS-2019-001897

PATIENT
  Age: 11 Year
  Sex: Male

DRUGS (13)
  1. DULERA [Concomitant]
     Active Substance: FORMOTEROL FUMARATE DIHYDRATE\MOMETASONE FUROATE
  2. PREDNISONE. [Concomitant]
     Active Substance: PREDNISONE
  3. PULMOZYME [Concomitant]
     Active Substance: DORNASE ALFA
  4. ONDANSETRON [Concomitant]
     Active Substance: ONDANSETRON
  5. ORKAMBI [Suspect]
     Active Substance: IVACAFTOR\LUMACAFTOR
     Indication: CYSTIC FIBROSIS
     Dosage: 250 MG, BID
     Route: 048
     Dates: start: 20161129
  6. CLONIDINE. [Concomitant]
     Active Substance: CLONIDINE
  7. SMZ-TMP [Concomitant]
     Active Substance: SULFAMETHOXAZOLE\TRIMETHOPRIM
  8. CYPROHEPTADIN [Concomitant]
  9. OSELTAMIVIR [Concomitant]
     Active Substance: OSELTAMIVIR
  10. ENSURE [Concomitant]
     Active Substance: AMINO ACIDS\DEXTROSE\ELECTROLYTES NOS\SOYBEAN OIL\VITAMINS
  11. FIBER [Concomitant]
     Active Substance: PSYLLIUM HUSK
  12. SODIUM CHLORIDE. [Concomitant]
     Active Substance: SODIUM CHLORIDE
  13. CREON [Concomitant]
     Active Substance: PANCRELIPASE AMYLASE\PANCRELIPASE LIPASE\PANCRELIPASE PROTEASE

REACTIONS (1)
  - Headache [Recovered/Resolved]

NARRATIVE: CASE EVENT DATE: 201902
